FAERS Safety Report 10659516 (Version 1)
Quarter: 2014Q4

REPORT INFORMATION
  Report Type: Spontaneous
  Country: ES (occurrence: ES)
  Receive Date: 20141217
  Receipt Date: 20141217
  Transmission Date: 20150529
  Serious: Yes (Other)
  Sender: FDA-Public Use
  Company Number: PHHY2014ES161734

PATIENT
  Age: 70 Year
  Sex: Male

DRUGS (3)
  1. LEVOFLOXACIN. [Interacting]
     Active Substance: LEVOFLOXACIN
     Indication: RESPIRATORY TRACT INFECTION
     Dosage: 500 MG, UNK
     Route: 048
     Dates: start: 20141024, end: 20141102
  2. EMULIQUEN SIMPLE [Concomitant]
     Indication: CONSTIPATION
     Route: 048
     Dates: start: 20141030, end: 20141103
  3. SINTROM [Suspect]
     Active Substance: ACENOCOUMAROL
     Indication: PRODUCT USED FOR UNKNOWN INDICATION
     Route: 048
     Dates: start: 2011, end: 20141103

REACTIONS (2)
  - Drug interaction [Unknown]
  - Hypocoagulable state [Recovered/Resolved]

NARRATIVE: CASE EVENT DATE: 20141103
